FAERS Safety Report 26151861 (Version 1)
Quarter: 2025Q4

REPORT INFORMATION
  Report Type: Spontaneous
  Country: US (occurrence: US)
  Receive Date: 20251214
  Receipt Date: 20251214
  Transmission Date: 20260117
  Serious: Yes (Other)
  Sender: PURDUE
  Company Number: US-PURDUE PHARMA-USA-2025-0322931

PATIENT
  Age: 80 Year
  Sex: Male

DRUGS (1)
  1. OXYCONTIN [Suspect]
     Active Substance: OXYCODONE HYDROCHLORIDE
     Indication: Pain
     Dosage: 1000 MILLIGRAM, DAILY
     Route: 048

REACTIONS (3)
  - Drug dependence [Unknown]
  - Adverse drug reaction [Unknown]
  - Inadequate analgesia [Unknown]
